FAERS Safety Report 5507491-3 (Version None)
Quarter: 2007Q4

REPORT INFORMATION
  Report Type: 
  Country: None (occurrence: None)
  Receive Date: 20071102
  Receipt Date: 20071023
  Transmission Date: 20080405
  Serious: Yes (Other)
  Sender: FDA-Public Use
  Company Number: 2007AL004526

PATIENT
  Age: 59 Year
  Sex: Male

DRUGS (8)
  1. METFORMIN HYDROCHLORIDE [Suspect]
     Dosage: PO
     Route: 048
  2. ACOMPLIA [Concomitant]
  3. LISINOPRIL [Concomitant]
  4. FRUSEMIDE [Concomitant]
  5. GLICLAZIDE [Concomitant]
  6. ASPIRIN [Concomitant]
  7. SIMVASTATIN [Concomitant]
  8. PIOGLITAZONE [Concomitant]

REACTIONS (1)
  - RENAL IMPAIRMENT [None]
